FAERS Safety Report 21107824 (Version 3)
Quarter: 2022Q4

REPORT INFORMATION
  Report Type: Report from Study
  Country: FR (occurrence: FR)
  Receive Date: 20220720
  Receipt Date: 20221017
  Transmission Date: 20230112
  Serious: Yes (Life-Threatening, Hospitalization, Other)
  Sender: FDA-Public Use
  Company Number: FR-BRISTOL-MYERS SQUIBB COMPANY-2022-065585

PATIENT
  Age: 67 Year
  Sex: Male

DRUGS (12)
  1. NIVOLUMAB [Suspect]
     Active Substance: NIVOLUMAB
     Indication: Squamous cell carcinoma of head and neck
     Dosage: D-14-D-10
     Route: 065
     Dates: start: 20220519
  2. NIVOLUMAB [Suspect]
     Active Substance: NIVOLUMAB
     Dosage: CYCLE 1 (D1)
     Route: 065
     Dates: start: 20220531
  3. NIVOLUMAB [Suspect]
     Active Substance: NIVOLUMAB
     Dosage: CYCLE 2 (DAY 22)
     Route: 065
     Dates: start: 20220621
  4. NIVOLUMAB [Suspect]
     Active Substance: NIVOLUMAB
     Dosage: CYCLE 1 (D1)
     Route: 065
     Dates: start: 20220601
  5. NIVOLUMAB [Suspect]
     Active Substance: NIVOLUMAB
     Dosage: D22
     Route: 065
     Dates: start: 20220612
  6. NIVOLUMAB [Suspect]
     Active Substance: NIVOLUMAB
     Route: 065
     Dates: start: 20220712
  7. NIVOLUMAB [Suspect]
     Active Substance: NIVOLUMAB
     Route: 065
     Dates: start: 20220817
  8. CISPLATIN [Suspect]
     Active Substance: CISPLATIN
     Indication: Squamous cell carcinoma of head and neck
     Dosage: DOSE 100 MG/M2
     Route: 065
     Dates: start: 20220531
  9. CISPLATIN [Suspect]
     Active Substance: CISPLATIN
     Dosage: CYCLE (D1),CISPLATIN 100 MG/M2: 1ST CYCLE, THEN, Q. 3 W
     Route: 065
     Dates: start: 20220601
  10. CISPLATIN [Suspect]
     Active Substance: CISPLATIN
     Route: 065
     Dates: start: 20220712
  11. PIPERACILLIN SODIUM\TAZOBACTAM SODIUM [Concomitant]
     Active Substance: PIPERACILLIN SODIUM\TAZOBACTAM SODIUM
     Indication: Pneumonia haemophilus
     Route: 065
  12. AUGMENTIN [Concomitant]
     Active Substance: AMOXICILLIN\CLAVULANATE POTASSIUM
     Indication: Pneumonia haemophilus
     Route: 065

REACTIONS (3)
  - Coma [Unknown]
  - Pneumonia [Unknown]
  - Acute respiratory failure [Unknown]

NARRATIVE: CASE EVENT DATE: 20220624
